FAERS Safety Report 14278095 (Version 1)
Quarter: 2017Q4

REPORT INFORMATION
  Report Type: Spontaneous
  Country: US (occurrence: US)
  Receive Date: 20171212
  Receipt Date: 20171212
  Transmission Date: 20180321
  Serious: No
  Sender: FDA-Public Use
  Company Number: US-PFIZER INC-2017529002

PATIENT
  Age: 53 Year
  Sex: Female

DRUGS (1)
  1. PREMARIN [Suspect]
     Active Substance: ESTROGENS, CONJUGATED
     Dosage: UNK

REACTIONS (6)
  - Abdominal pain [Unknown]
  - Blood pressure increased [Unknown]
  - Weight increased [Unknown]
  - Pain [Unknown]
  - Uterine leiomyoma [Unknown]
  - Abdominal tenderness [Unknown]
